FAERS Safety Report 7430879-0 (Version None)
Quarter: 2011Q2

REPORT INFORMATION
  Report Type: 
  Country: None (occurrence: None)
  Receive Date: 20110421
  Receipt Date: 20110412
  Transmission Date: 20111010
  Serious: Yes (Other)
  Sender: FDA-Public Use
  Company Number: US-BRISTOL-MYERS SQUIBB COMPANY-15680325

PATIENT
  Age: 43 Year
  Sex: Male

DRUGS (1)
  1. ABILIFY [Suspect]
     Route: 065

REACTIONS (1)
  - ASTHMA [None]
